FAERS Safety Report 5005729-2 (Version None)
Quarter: 2006Q2

REPORT INFORMATION
  Report Type: 
  Country: None (occurrence: None)
  Receive Date: 20060518
  Receipt Date: 20060328
  Transmission Date: 20061013
  Serious: Yes (Other)
  Sender: FDA-Public Use
  Company Number: 2006PK01044

PATIENT
  Age: 28098 Day
  Sex: Female

DRUGS (1)
  1. OMEPRAZOLE [Suspect]
     Indication: GASTRITIS
     Route: 048

REACTIONS (3)
  - DRUG TOXICITY [None]
  - HEMIANOPIA [None]
  - OPTIC NERVE INJURY [None]
